FAERS Safety Report 25217652 (Version 1)
Quarter: 2025Q2

REPORT INFORMATION
  Report Type: Spontaneous
  Country: KR (occurrence: KR)
  Receive Date: 20250420
  Receipt Date: 20250420
  Transmission Date: 20250716
  Serious: Yes (Hospitalization)
  Sender: PRINSTON PHARMACEUTICAL
  Company Number: KR-PRINSTON PHARMACEUTICAL INC.-2025PRN00125

PATIENT
  Age: 83 Year
  Sex: Male

DRUGS (3)
  1. VORICONAZOLE [Suspect]
     Active Substance: VORICONAZOLE
     Indication: Bronchopulmonary aspergillosis
     Dosage: 700 MG, 1X/DAY (CONCENTRATION-0.3 MG/L))
  2. VORICONAZOLE [Suspect]
     Active Substance: VORICONAZOLE
     Dosage: 900 MG, 1X/DAY (CONCENTRATION-4.1 MG/L)
  3. RIFABUTIN [Suspect]
     Active Substance: RIFABUTIN
     Indication: Atypical mycobacterial infection
     Dosage: 300 MG, 1X/DAY

REACTIONS (6)
  - Septic shock [Unknown]
  - Hypoaesthesia [Unknown]
  - Hallucination, visual [Unknown]
  - Delirium [Unknown]
  - Electrocardiogram QT prolonged [Unknown]
  - Drug interaction [Unknown]
